FAERS Safety Report 7299596-4 (Version None)
Quarter: 2011Q1

REPORT INFORMATION
  Report Type: 
  Country: None (occurrence: None)
  Receive Date: 20110217
  Receipt Date: 20110209
  Transmission Date: 20110831
  Serious: Yes (Hospitalization)
  Sender: FDA-Public Use
  Company Number: A0913801A

PATIENT
  Age: 53 Year
  Sex: Male
  Weight: 81.9 kg

DRUGS (2)
  1. CHEMOTHERAPY [Suspect]
     Indication: DIFFUSE LARGE B-CELL LYMPHOMA RECURRENT
  2. OFATUMUMAB [Suspect]
     Indication: DIFFUSE LARGE B-CELL LYMPHOMA RECURRENT
     Route: 042
     Dates: start: 20110128

REACTIONS (2)
  - RENAL FAILURE ACUTE [None]
  - FEBRILE NEUTROPENIA [None]
